FAERS Safety Report 7742798-0 (Version None)
Quarter: 2011Q3

REPORT INFORMATION
  Report Type: 
  Country: None (occurrence: None)
  Receive Date: 20110912
  Receipt Date: 20110831
  Transmission Date: 20111222
  Serious: Yes (Death, Hospitalization)
  Sender: FDA-Public Use
  Company Number: US-CELGENEUS-163-21880-11071506

PATIENT
  Sex: Female
  Weight: 54.026 kg

DRUGS (25)
  1. REVLIMID [Suspect]
     Indication: MULTIPLE MYELOMA
     Dosage: 25 MILLIGRAM
     Route: 048
     Dates: start: 20110629, end: 20110705
  2. TYLENOL-500 [Concomitant]
     Dosage: 500 MILLIGRAM
     Route: 048
  3. MULTI-VITAMINS [Concomitant]
     Route: 065
     Dates: start: 20110601
  4. DECONGESTANTS [Concomitant]
     Route: 065
     Dates: start: 20110601
  5. NICOTINE [Concomitant]
     Route: 062
     Dates: start: 20110601
  6. ZOMETA [Concomitant]
     Dosage: 4 MILLIGRAM
     Route: 041
     Dates: start: 20110615
  7. DOCUSATE CALCIUM [Concomitant]
     Dosage: 240 MILLIGRAM
     Route: 048
  8. VELCADE [Concomitant]
     Dosage: 2 MILLIGRAM
     Route: 041
     Dates: start: 20110628, end: 20110705
  9. ALLOPURINOL [Concomitant]
     Dosage: 300 MILLIGRAM
     Route: 048
  10. PLATELETS [Concomitant]
     Dosage: 1 UNITS
     Route: 041
     Dates: start: 20110706, end: 20110706
  11. DEXAMETHASONE [Concomitant]
     Dosage: 10-20MG
     Route: 065
     Dates: start: 20110628, end: 20110705
  12. LORAZEPAM [Concomitant]
     Indication: NAUSEA
     Dosage: 1 MILLIGRAM
     Route: 048
  13. ANTIVERT [Concomitant]
     Route: 065
     Dates: start: 20110601
  14. OXYCODONE HCL [Concomitant]
     Indication: PAIN
     Dosage: 5 MILLIGRAM
     Route: 048
  15. FRESH FROZEN PLASMA [Concomitant]
     Dosage: 1 UNITS
     Route: 041
     Dates: start: 20110706, end: 20110706
  16. FLUIDS [Concomitant]
     Route: 041
     Dates: start: 20110601
  17. FRAGMIN [Concomitant]
     Route: 065
     Dates: start: 20110601
  18. CEFTRIAXONE [Concomitant]
     Indication: URINARY TRACT INFECTION
     Dosage: 1 GRAM
     Route: 041
     Dates: start: 20110601
  19. LACTULOSE [Concomitant]
     Dosage: 10G/15ML
     Route: 048
  20. AMOXICILLIN [Concomitant]
     Route: 065
     Dates: start: 20110601
  21. INTEGRILIN [Concomitant]
     Route: 065
     Dates: start: 20110601
  22. SIMVASTATIN [Concomitant]
     Dosage: 20 MILLIGRAM
     Route: 065
     Dates: start: 20110601
  23. PROCHLORPERAZINE [Concomitant]
     Indication: NAUSEA
     Dosage: 10 MILLIGRAM
     Route: 048
  24. ASPIRIN [Concomitant]
     Dosage: 81 MILLIGRAM
     Route: 048
  25. METOPROLOL SUCCINATE [Concomitant]
     Indication: URINARY TRACT INFECTION
     Dosage: 25 MILLIGRAM
     Route: 048
     Dates: start: 20110601

REACTIONS (5)
  - GASTROINTESTINAL NECROSIS [None]
  - HAEMORRHAGE [None]
  - SEPSIS [None]
  - HYPERTENSION [None]
  - LARGE INTESTINE PERFORATION [None]
